FAERS Safety Report 11265358 (Version 1)
Quarter: 2015Q3

REPORT INFORMATION
  Report Type: Spontaneous
  Country: US (occurrence: US)
  Receive Date: 20150713
  Receipt Date: 20150713
  Transmission Date: 20151125
  Serious: No
  Sender: FDA-Public Use
  Company Number: US-BIOGENIDEC-2015BI095727

PATIENT
  Sex: Female
  Weight: 90 kg

DRUGS (4)
  1. NORTRIPTYLINE [Concomitant]
     Active Substance: NORTRIPTYLINE
     Indication: HEADACHE
     Dates: start: 200802
  2. AVONEX [Suspect]
     Active Substance: INTERFERON BETA-1A
     Indication: MULTIPLE SCLEROSIS
     Route: 030
     Dates: start: 2003
  3. ATENOLOL. [Concomitant]
     Active Substance: ATENOLOL
     Indication: TREMOR
  4. NEOSAL-N [Concomitant]
     Indication: HEADACHE

REACTIONS (11)
  - Platelet count decreased [Unknown]
  - Feeling cold [Recovered/Resolved]
  - Tremor [Not Recovered/Not Resolved]
  - Menstruation irregular [Recovered/Resolved]
  - Purulent discharge [Unknown]
  - Drug ineffective [Unknown]
  - Cough [Not Recovered/Not Resolved]
  - Pain [Recovered/Resolved]
  - Rash macular [Unknown]
  - Malaise [Unknown]
  - Urethritis gonococcal [Unknown]

NARRATIVE: CASE EVENT DATE: 2003
